FAERS Safety Report 10529876 (Version 2)
Quarter: 2014Q4

REPORT INFORMATION
  Report Type: Spontaneous
  Country: US (occurrence: None)
  Receive Date: 20141017
  Receipt Date: 20141103
  Transmission Date: 20150528
  Serious: Yes (Other)
  Sender: FDA-Public Use
  Company Number: UCM201410-000174

PATIENT
  Age: 57 Year
  Sex: Female

DRUGS (8)
  1. PHENYTOIN. [Suspect]
     Active Substance: PHENYTOIN
     Indication: SEIZURE
     Route: 042
  2. DIVALPROEX SODIUM. [Suspect]
     Active Substance: DIVALPROEX SODIUM
     Indication: SEIZURE
  3. AMLODIPINE [Concomitant]
     Active Substance: AMLODIPINE BESYLATE
  4. MINOXIDIL (MINOXIDIL) (MINOXIDIL) [Concomitant]
  5. PHENOBARBITAL. [Suspect]
     Active Substance: PHENOBARBITAL
     Indication: SEIZURE
  6. LEVETIRACETAM (LEVETIRACETAM) (LEVETIRACETAM) [Concomitant]
  7. LISINOPRIL (LISINOPRIL) (LISINOPRIL) [Concomitant]
     Active Substance: LISINOPRIL
  8. HYDRALAZINE (HYDRALAZINE) (HYDRALAZINE) [Concomitant]

REACTIONS (5)
  - Lactic acidosis [None]
  - Drug-induced liver injury [None]
  - Seizure [None]
  - Shock [None]
  - Anion gap [None]
